FAERS Safety Report 8573181-6 (Version None)
Quarter: 2012Q3

REPORT INFORMATION
  Report Type: 
  Country: None (occurrence: None)
  Receive Date: 20120806
  Receipt Date: 20120724
  Transmission Date: 20120928
  Serious: No
  Sender: FDA-Public Use
  Company Number: US-ASTRAZENECA-2011SE77299

PATIENT
  Age: 63 Year
  Sex: Female

DRUGS (3)
  1. CYMBALTA [Concomitant]
  2. NEXIUM [Suspect]
     Route: 048
  3. PRILOSEC [Suspect]
     Route: 048

REACTIONS (8)
  - DRUG INEFFECTIVE [None]
  - FOOT FRACTURE [None]
  - SLEEP DISORDER DUE TO A GENERAL MEDICAL CONDITION [None]
  - ABDOMINAL PAIN UPPER [None]
  - CHOKING SENSATION [None]
  - GASTROOESOPHAGEAL REFLUX DISEASE [None]
  - DRUG DOSE OMISSION [None]
  - INSOMNIA [None]
